FAERS Safety Report 4652864-4 (Version None)
Quarter: 2005Q2

REPORT INFORMATION
  Report Type: 
  Country: None (occurrence: None)
  Receive Date: 20050502
  Receipt Date: 20050422
  Transmission Date: 20051028
  Serious: Yes (Life-Threatening, Hospitalization)
  Sender: FDA-Public Use
  Company Number: PHNU2005DE00987

PATIENT
  Age: 37 Year
  Sex: Male

DRUGS (3)
  1. LIORESAL [Suspect]
     Indication: MUSCLE SPASTICITY
     Dosage: 50000 UG, ONCE/SINGLE INTRATHECAL
     Route: 037
     Dates: start: 20050217, end: 20050217
  2. TIMONIL (CARBAMAZEPINE) [Concomitant]
  3. TIZANIDINE HCL [Concomitant]

REACTIONS (10)
  - CARDIOVASCULAR DISORDER [None]
  - COMA [None]
  - CONVULSION [None]
  - DEPRESSED LEVEL OF CONSCIOUSNESS [None]
  - DISORIENTATION [None]
  - HYPOTENSION [None]
  - INCORRECT DOSE ADMINISTERED [None]
  - MEMORY IMPAIRMENT [None]
  - MUSCLE SPASTICITY [None]
  - RESPIRATORY FAILURE [None]
